FAERS Safety Report 15895211 (Version 3)
Quarter: 2019Q3

REPORT INFORMATION
  Report Type: Spontaneous
  Country: US (occurrence: US)
  Receive Date: 20190131
  Receipt Date: 20190919
  Transmission Date: 20191004
  Serious: No
  Sender: FDA-Public Use
  Company Number: US-BAUSCH-BL-2019-001693

PATIENT
  Sex: Female

DRUGS (2)
  1. RETISERT [Suspect]
     Active Substance: FLUOCINOLONE ACETONIDE
     Dosage: 12 MONTHS AGO (3RD RETISERT)
     Route: 065
     Dates: start: 2018
  2. RETISERT [Suspect]
     Active Substance: FLUOCINOLONE ACETONIDE
     Indication: PRODUCT USED FOR UNKNOWN INDICATION
     Dosage: SEQUENTIALLY ABOUT 30 MONTHS APART IN THE PAST YEARS (2 RETISERT)
     Route: 065
     Dates: start: 2016

REACTIONS (1)
  - Therapy non-responder [Unknown]

NARRATIVE: CASE EVENT DATE: 2018
